FAERS Safety Report 15490469 (Version 1)
Quarter: 2018Q4

REPORT INFORMATION
  Report Type: Spontaneous
  Country: AR (occurrence: AR)
  Receive Date: 20181011
  Receipt Date: 20181011
  Transmission Date: 20190205
  Serious: Yes (Hospitalization)
  Sender: FDA-Public Use
  Company Number: PHHY2018AR119111

PATIENT
  Age: 68 Year
  Sex: Male
  Weight: 93 kg

DRUGS (1)
  1. EXJADE [Suspect]
     Active Substance: DEFERASIROX
     Indication: IRON OVERLOAD
     Dosage: 500 MG, UNK
     Route: 048
     Dates: start: 20180917, end: 20180920

REACTIONS (9)
  - Burning sensation [Unknown]
  - Dysphagia [Unknown]
  - Vitamin B12 abnormal [Unknown]
  - Dyspnoea [Unknown]
  - Serum ferritin abnormal [Unknown]
  - Seizure [Unknown]
  - Hiccups [Unknown]
  - Wrong technique in product usage process [Unknown]
  - Red blood cell count abnormal [Unknown]

NARRATIVE: CASE EVENT DATE: 20180918
